FAERS Safety Report 15943739 (Version 1)
Quarter: 2019Q1

REPORT INFORMATION
  Report Type: Spontaneous
  Country: US (occurrence: US)
  Receive Date: 20190118
  Receipt Date: 20190118
  Transmission Date: 20190417
  Serious: No
  Sender: FDA-Public Use
  Company Number: None

PATIENT
  Age: 57 Year
  Sex: Male

DRUGS (2)
  1. XELJANZ [Suspect]
     Active Substance: TOFACITINIB CITRATE
  2. ENBREL [Concomitant]
     Active Substance: ETANERCEPT
     Dates: start: 20181223, end: 20190111

REACTIONS (4)
  - Sinusitis [None]
  - Joint swelling [None]
  - Rash erythematous [None]
  - Hepatic enzyme increased [None]

NARRATIVE: CASE EVENT DATE: 20190118
